FAERS Safety Report 17840476 (Version 1)
Quarter: 2020Q2

REPORT INFORMATION
  Report Type: Other
  Country: CA (occurrence: CA)
  Receive Date: 20200529
  Receipt Date: 20200529
  Transmission Date: 20200714
  Serious: Yes (Life-Threatening, Hospitalization, Other)
  Sender: FDA-Public Use
  Company Number: CA-COVIS PHARMA B.V.-2020COV00218

PATIENT
  Age: 25 Year
  Sex: Female

DRUGS (13)
  1. IPRATROPIUM; SALBUTAMOL [Suspect]
     Active Substance: ALBUTEROL\IPRATROPIUM
  2. ADVAIR HFA [Suspect]
     Active Substance: FLUTICASONE PROPIONATE\SALMETEROL XINAFOATE
  3. SALBUTAMOL SULFATE [Suspect]
     Active Substance: ALBUTEROL SULFATE
  4. ATROVENT [Suspect]
     Active Substance: IPRATROPIUM BROMIDE
  5. ALVESCO [Suspect]
     Active Substance: CICLESONIDE
     Dosage: 2 DOSAGE UNITS (DAILY DOSE)
  6. SPIRIVA [Suspect]
     Active Substance: TIOTROPIUM BROMIDE MONOHYDRATE
     Dosage: 2 DOSAGE UNITS, 1X/DAY
  7. BREO ELLIPTA [Suspect]
     Active Substance: FLUTICASONE FUROATE\VILANTEROL TRIFENATATE
  8. MONTELUKAST [Suspect]
     Active Substance: MONTELUKAST SODIUM
     Dosage: 10 MG (DAILY DOSE)
  9. OMALIZUMAB. [Suspect]
     Active Substance: OMALIZUMAB
  10. SINGULAIR [Suspect]
     Active Substance: MONTELUKAST SODIUM
  11. FLOVENT [Suspect]
     Active Substance: FLUTICASONE PROPIONATE
  12. PREDNISONE. [Suspect]
     Active Substance: PREDNISONE
  13. SYMBICORT [Suspect]
     Active Substance: BUDESONIDE\FORMOTEROL FUMARATE DIHYDRATE
     Dosage: POWDER

REACTIONS (13)
  - Dyspnoea [Unknown]
  - Loss of personal independence in daily activities [Unknown]
  - Asthma [Unknown]
  - Cardiac arrest [Unknown]
  - Cough [Unknown]
  - Chronic obstructive pulmonary disease [Unknown]
  - FEV1/FVC ratio decreased [Unknown]
  - Blood count abnormal [Unknown]
  - Wheezing [Unknown]
  - Therapeutic product effect incomplete [Not Recovered/Not Resolved]
  - Throat clearing [Unknown]
  - Chest discomfort [Unknown]
  - Obstructive airways disorder [Unknown]
